FAERS Safety Report 18643140 (Version 1)
Quarter: 2020Q4

REPORT INFORMATION
  Report Type: Spontaneous
  Country: FR (occurrence: FR)
  Receive Date: 20201221
  Receipt Date: 20201221
  Transmission Date: 20210114
  Serious: Yes (Death, Hospitalization, Other)
  Sender: FDA-Public Use
  Company Number: FR-009507513-2012FRA006827

PATIENT
  Sex: Male

DRUGS (3)
  1. RIBAVIRIN. [Suspect]
     Active Substance: RIBAVIRIN
     Dosage: UNK
     Dates: start: 20150127, end: 20150714
  2. SOVALDI [Concomitant]
     Active Substance: SOFOSBUVIR
  3. DAKLINZA [Concomitant]
     Active Substance: DACLATASVIR

REACTIONS (3)
  - Hepatocellular carcinoma [Fatal]
  - Gastrointestinal haemorrhage [Unknown]
  - Hypercalcaemia [Recovered/Resolved]

NARRATIVE: CASE EVENT DATE: 20181113
